FAERS Safety Report 21887194 (Version 5)
Quarter: 2023Q1

REPORT INFORMATION
  Report Type: Report from Study
  Country: US (occurrence: US)
  Receive Date: 20230119
  Receipt Date: 20230323
  Transmission Date: 20230418
  Serious: No
  Sender: FDA-Public Use
  Company Number: US-002147023-NVSC2023US012790

PATIENT
  Sex: Female

DRUGS (1)
  1. KISQALI [Suspect]
     Active Substance: RIBOCICLIB
     Indication: Product used for unknown indication
     Dosage: UNK
     Route: 048
     Dates: start: 20230116

REACTIONS (8)
  - Eye inflammation [Unknown]
  - Hordeolum [Unknown]
  - Ocular hyperaemia [Unknown]
  - Malaise [Unknown]
  - Nausea [Unknown]
  - Dry eye [Unknown]
  - Dry skin [Unknown]
  - Dry mouth [Unknown]
